FAERS Safety Report 8008487-2 (Version None)
Quarter: 2011Q4

REPORT INFORMATION
  Report Type: 
  Country: None (occurrence: None)
  Receive Date: 20111227
  Receipt Date: 20111214
  Transmission Date: 20120403
  Serious: Yes (Other)
  Sender: FDA-Public Use
  Company Number: US-ROCHE-802985

PATIENT
  Sex: Male
  Weight: 83.99 kg

DRUGS (1)
  1. ACCUTANE [Suspect]
     Indication: ACNE
     Route: 048
     Dates: start: 20020601, end: 20030101

REACTIONS (8)
  - EMOTIONAL DISTRESS [None]
  - COLITIS ULCERATIVE [None]
  - INFLAMMATORY BOWEL DISEASE [None]
  - SUICIDAL IDEATION [None]
  - ACNE [None]
  - DRY SKIN [None]
  - LIP DRY [None]
  - CROHN'S DISEASE [None]
